FAERS Safety Report 9963979 (Version 2)
Quarter: 2014Q1

REPORT INFORMATION
  Report Type: Spontaneous
  Country: AU (occurrence: AU)
  Receive Date: 20140305
  Receipt Date: 20140305
  Transmission Date: 20141002
  Serious: Yes (Disabling)
  Sender: FDA-Public Use
  Company Number: AU-B.I. PHARMACEUTICALS,INC./RIDGEFIELD-2014-BI-06847AU

PATIENT
  Age: 67 Year
  Sex: Male
  Weight: 86 kg

DRUGS (5)
  1. PRADAXA [Suspect]
     Indication: ATRIAL FIBRILLATION
     Dosage: 300 MG
     Route: 065
     Dates: start: 20140108, end: 20140121
  2. LIPITOR [Concomitant]
     Dosage: 80 MG
     Route: 065
  3. MICARDIS [Concomitant]
     Dosage: 40 MG
     Route: 065
  4. SOTALOL [Concomitant]
     Dosage: 240 MG
     Route: 065
  5. PRAZOSIN [Concomitant]
     Dosage: 1 MG
     Route: 065

REACTIONS (2)
  - Myalgia [Recovered/Resolved]
  - Arthralgia [Recovered/Resolved]
